FAERS Safety Report 20679815 (Version 1)
Quarter: 2022Q2

REPORT INFORMATION
  Report Type: Report from Study
  Country: FR (occurrence: FR)
  Receive Date: 20220406
  Receipt Date: 20220406
  Transmission Date: 20220721
  Serious: Yes (Hospitalization)
  Sender: FDA-Public Use
  Company Number: FR-LEO Pharma-339076

PATIENT
  Age: 20 Year
  Sex: Male
  Weight: 96 kg

DRUGS (2)
  1. DEVICE [Suspect]
     Active Substance: DEVICE
     Indication: Dermatitis atopic
  2. TRALOKINUMAB [Suspect]
     Active Substance: TRALOKINUMAB
     Indication: Dermatitis atopic
     Dosage: DOSAGE: 300 MG EVERY 2 WEEKS ?STARTED - PARTIAL : JULY 2021?STOPPED - PARTIAL : DECEMBER 2021
     Route: 058

REACTIONS (2)
  - Conjunctivitis [Unknown]
  - Dermatitis atopic [Recovering/Resolving]

NARRATIVE: CASE EVENT DATE: 20211201
